FAERS Safety Report 12975932 (Version 3)
Quarter: 2017Q2

REPORT INFORMATION
  Report Type: Report from Study
  Country: JP (occurrence: JP)
  Receive Date: 20161125
  Receipt Date: 20170623
  Transmission Date: 20170830
  Serious: Yes (Hospitalization)
  Sender: FDA-Public Use
  Company Number: JP-ASTRAZENECA-2016SF23959

PATIENT
  Age: 56 Year
  Sex: Male
  Weight: 80 kg

DRUGS (3)
  1. TALC [Suspect]
     Active Substance: TALC
     Indication: PLEURODESIS
     Route: 034
     Dates: start: 20160718, end: 20160718
  2. TAGRISSO [Suspect]
     Active Substance: OSIMERTINIB
     Indication: NON-SMALL CELL LUNG CANCER
     Route: 048
     Dates: start: 20160812
  3. TAGRISSO [Suspect]
     Active Substance: OSIMERTINIB
     Indication: NON-SMALL CELL LUNG CANCER
     Route: 048
     Dates: start: 20160531, end: 20160804

REACTIONS (2)
  - Vomiting [Recovered/Resolved]
  - Interstitial lung disease [Recovering/Resolving]

NARRATIVE: CASE EVENT DATE: 20160531
